FAERS Safety Report 13965908 (Version 1)
Quarter: 2017Q3

REPORT INFORMATION
  Report Type: Spontaneous
  Country: US (occurrence: US)
  Receive Date: 20170913
  Receipt Date: 20170913
  Transmission Date: 20171128
  Serious: Yes (Hospitalization, Other)
  Sender: FDA-Public Use
  Company Number: US-LUNDBECK-DKLU2036941

PATIENT
  Age: 73 Year
  Sex: Female

DRUGS (2)
  1. NORTHERA [Suspect]
     Active Substance: DROXIDOPA
     Indication: AUTONOMIC NEUROPATHY
     Dosage: LAST DOSE AT LEAST 3 HOURS BEFORE BEDTIME
     Route: 048
     Dates: start: 20160824
  2. NITROGLYCERINE SPRAY [Concomitant]
     Indication: PRODUCT USED FOR UNKNOWN INDICATION
     Route: 065

REACTIONS (4)
  - Fall [Recovered/Resolved]
  - Stress [Unknown]
  - Blood pressure increased [Recovered/Resolved]
  - Headache [Recovered/Resolved]

NARRATIVE: CASE EVENT DATE: 201707
